FAERS Safety Report 19680420 (Version 1)
Quarter: 2021Q3

REPORT INFORMATION
  Report Type: Spontaneous
  Country: US (occurrence: US)
  Receive Date: 20210810
  Receipt Date: 20210810
  Transmission Date: 20211014
  Serious: No
  Sender: FDA-Public Use
  Company Number: None

PATIENT
  Age: 23 Year
  Sex: Female
  Weight: 72.58 kg

DRUGS (2)
  1. FERROUS GLUCONNATE [Concomitant]
  2. NEXPLANON [Suspect]
     Active Substance: ETONOGESTREL
     Indication: CONTRACEPTION
     Dates: start: 20210303, end: 20210630

REACTIONS (8)
  - Vulvovaginal discomfort [None]
  - Urinary tract discomfort [None]
  - Fatigue [None]
  - Depression [None]
  - Nausea [None]
  - Urinary tract infection [None]
  - Arthralgia [None]
  - Anxiety [None]

NARRATIVE: CASE EVENT DATE: 20210315
